FAERS Safety Report 9177722 (Version 4)
Quarter: 2015Q1

REPORT INFORMATION
  Report Type: Spontaneous
  Country: US (occurrence: US)
  Receive Date: 20130321
  Receipt Date: 20150331
  Transmission Date: 20150721
  Serious: Yes (Hospitalization, Other)
  Sender: FDA-Public Use
  Company Number: US-009507513-1303USA009747

PATIENT
  Sex: Female
  Weight: 69.39 kg

DRUGS (3)
  1. FOSAMAX [Suspect]
     Active Substance: ALENDRONATE SODIUM
     Dosage: 70 MG, UNK
     Route: 048
     Dates: start: 200010, end: 20110617
  2. ALENDRONATE SODIUM. [Suspect]
     Active Substance: ALENDRONATE SODIUM
     Indication: OSTEOPOROSIS
     Dosage: 70 MG, UNK
     Route: 048
     Dates: start: 20080206, end: 201107
  3. FOSAMAX [Suspect]
     Active Substance: ALENDRONATE SODIUM
     Indication: OSTEOPOROSIS
     Dosage: 10 MG, UNK
     Route: 048
     Dates: start: 1997, end: 200010

REACTIONS (32)
  - Intramedullary rod insertion [Unknown]
  - Femur fracture [Recovered/Resolved]
  - Low turnover osteopathy [Unknown]
  - Adverse event [Unknown]
  - Ligament sprain [Unknown]
  - Hypokalaemia [Unknown]
  - Bunion operation [Unknown]
  - Osteopenia [Unknown]
  - Chronic kidney disease [Unknown]
  - Depression [Not Recovered/Not Resolved]
  - Haemorrhagic anaemia [Recovering/Resolving]
  - Hypotension [Unknown]
  - Cataract operation [Unknown]
  - Ovarian neoplasm [Unknown]
  - Laceration [Recovering/Resolving]
  - Tumour excision [Unknown]
  - Constipation [Unknown]
  - Fear [Not Recovered/Not Resolved]
  - Calcium deficiency [Unknown]
  - Muscle strain [Unknown]
  - Blood magnesium decreased [Unknown]
  - Oophorectomy [Unknown]
  - Acute kidney injury [Unknown]
  - Cholecystectomy [Unknown]
  - Anxiety [Not Recovered/Not Resolved]
  - Hypertension [Unknown]
  - Osteoarthritis [Unknown]
  - Urinary tract infection [Unknown]
  - Femur fracture [Unknown]
  - Mobility decreased [Unknown]
  - Adverse event [Unknown]
  - Hyperlipidaemia [Unknown]

NARRATIVE: CASE EVENT DATE: 1999
